FAERS Safety Report 7346726-1 (Version None)
Quarter: 2011Q1

REPORT INFORMATION
  Report Type: 
  Country: None (occurrence: None)
  Receive Date: 20110302
  Receipt Date: 20110217
  Transmission Date: 20110831
  Serious: Yes (Other)
  Sender: FDA-Public Use
  Company Number: 027939

PATIENT

DRUGS (3)
  1. VIMPAT [Suspect]
  2. VALPROATE SODIUM [Suspect]
  3. PROPRANOLOL [Suspect]

REACTIONS (2)
  - HYPONATRAEMIA [None]
  - INAPPROPRIATE ANTIDIURETIC HORMONE SECRETION [None]
